FAERS Safety Report 6507401-6 (Version None)
Quarter: 2009Q4

REPORT INFORMATION
  Report Type: 
  Country: None (occurrence: None)
  Receive Date: 20091221
  Receipt Date: 20091207
  Transmission Date: 20100525
  Serious: Yes (Other)
  Sender: FDA-Public Use
  Company Number: US-GENENTECH-202690

PATIENT
  Age: 58 Year
  Sex: Male

DRUGS (5)
  1. RITUXIMAB [Suspect]
     Indication: WALDENSTROM'S MACROGLOBULINAEMIA
     Dosage: 100 MG, SINGLE
     Route: 042
  2. RITUXIMAB [Suspect]
     Dosage: 375 MG/M2, 3/WEEK
     Route: 042
  3. DIPHENHYDRAMINE HCL [Concomitant]
     Indication: PREMEDICATION
  4. ACETAMINOPHEN [Concomitant]
     Indication: PREMEDICATION
  5. ALLOPURINOL [Concomitant]
     Indication: PROPHYLAXIS

REACTIONS (2)
  - INFLAMMATION [None]
  - POLYARTHRITIS [None]
